FAERS Safety Report 8791885 (Version 2)
Quarter: 2012Q4

REPORT INFORMATION
  Report Type: 
  Country: US (occurrence: US)
  Receive Date: 20120918
  Receipt Date: 20121003
  Transmission Date: 20130627
  Serious: Yes (Other)
  Sender: FDA-Public Use
  Company Number: US-PFIZER INC-2012228392

PATIENT
  Age: 58 Year
  Sex: Female
  Weight: 110 kg

DRUGS (4)
  1. LIPITOR [Suspect]
     Indication: BLOOD CHOLESTEROL INCREASED
     Dosage: 20 mg, daily
  2. METOPROLOL [Concomitant]
     Indication: HYPERTENSION
     Dosage: 50 mg, daily
  3. NORCO [Concomitant]
     Indication: PAIN
     Dosage: 10 mg/325 mg, 4x/day
  4. PROMETHAZINE [Concomitant]
     Indication: NAUSEA
     Dosage: 25 mg, every 4 hrs

REACTIONS (4)
  - Bone marrow disorder [Not Recovered/Not Resolved]
  - Platelet count decreased [Not Recovered/Not Resolved]
  - Anaemia [Not Recovered/Not Resolved]
  - White blood cell count decreased [Unknown]
